FAERS Safety Report 5801102-5 (Version None)
Quarter: 2008Q3

REPORT INFORMATION
  Report Type: 
  Country: None (occurrence: None)
  Receive Date: 20080707
  Receipt Date: 20080703
  Transmission Date: 20090109
  Serious: Yes (Hospitalization, Other)
  Sender: FDA-Public Use
  Company Number: US-BRISTOL-MYERS SQUIBB COMPANY-14230809

PATIENT
  Age: 37 Year
  Sex: Female
  Weight: 52 kg

DRUGS (6)
  1. COUMADIN [Suspect]
  2. ASPIRIN [Suspect]
     Indication: MYOCARDIAL INFARCTION
     Route: 048
     Dates: start: 20051229, end: 20060801
  3. ASPIRIN [Suspect]
     Indication: CHEST PAIN
     Route: 048
     Dates: start: 20051229, end: 20060801
  4. CONTRACEPTIVE [Concomitant]
     Route: 048
  5. COREG [Concomitant]
  6. INSPRA [Concomitant]

REACTIONS (5)
  - CARDIAC FAILURE [None]
  - COAGULATION TIME PROLONGED [None]
  - COLLAPSE OF LUNG [None]
  - PALPITATIONS [None]
  - PULMONARY OEDEMA [None]
